FAERS Safety Report 5474912-4 (Version None)
Quarter: 2007Q4

REPORT INFORMATION
  Report Type: 
  Country: None (occurrence: None)
  Receive Date: 20071002
  Receipt Date: 20070924
  Transmission Date: 20080405
  Serious: Yes (Other)
  Sender: FDA-Public Use
  Company Number: TR-AVENTIS-200718961GDDC

PATIENT
  Age: 47 Year
  Sex: Female
  Weight: 80 kg

DRUGS (7)
  1. LANTUS [Suspect]
     Route: 058
     Dates: start: 20030101
  2. AUTOPEN 24 [Suspect]
  3. ISOPTIN [Concomitant]
     Dosage: DOSE QUANTITY: 1
     Route: 048
  4. DELIX                              /00885601/ [Concomitant]
     Indication: HYPERTENSION
     Route: 048
  5. BELOC                              /00376902/ [Concomitant]
     Indication: HYPERTENSION
     Route: 048
  6. NOVONORM [Concomitant]
     Route: 048
  7. GLUKOFEN [Concomitant]
     Route: 048

REACTIONS (2)
  - CONSTIPATION [None]
  - WEIGHT INCREASED [None]
